FAERS Safety Report 9322154 (Version 2)
Quarter: 2013Q3

REPORT INFORMATION
  Report Type: Report from Study
  Country: SE (occurrence: SE)
  Receive Date: 20130531
  Receipt Date: 20130730
  Transmission Date: 20140515
  Serious: Yes (Other)
  Sender: FDA-Public Use
  Company Number: SE-ABBOTT-13P-150-1094323-00

PATIENT
  Sex: Female

DRUGS (3)
  1. HUMIRA [Suspect]
     Indication: CROHN^S DISEASE
     Dosage: START DOSE
     Route: 058
     Dates: start: 20110201, end: 20110201
  2. HUMIRA [Suspect]
     Dosage: START DOSE
     Route: 058
  3. HUMIRA [Suspect]
     Route: 058
     Dates: end: 20110412

REACTIONS (1)
  - Sensory loss [Unknown]
